FAERS Safety Report 7098412-3 (Version None)
Quarter: 2010Q4

REPORT INFORMATION
  Report Type: 
  Country: None (occurrence: None)
  Receive Date: 20101112
  Receipt Date: 20101108
  Transmission Date: 20110411
  Serious: Yes (Other)
  Sender: FDA-Public Use
  Company Number: US-PFIZER INC-2010015616

PATIENT
  Sex: Female
  Weight: 91.61 kg

DRUGS (3)
  1. LIPITOR [Suspect]
     Indication: BLOOD CHOLESTEROL INCREASED
     Dosage: 40 MG, 1X/DAY
     Route: 048
     Dates: start: 20050101
  2. ACETYLSALICYLIC ACID [Concomitant]
     Dosage: UNK
  3. LANTUS [Concomitant]
     Dosage: UNK

REACTIONS (10)
  - ARTHRALGIA [None]
  - BLOOD PRESSURE ABNORMAL [None]
  - CONSTIPATION [None]
  - GAIT DISTURBANCE [None]
  - HEADACHE [None]
  - LIMB DISCOMFORT [None]
  - LIVER DISORDER [None]
  - MALAISE [None]
  - PAIN [None]
  - PAIN IN EXTREMITY [None]
